FAERS Safety Report 9093065 (Version 1)
Quarter: 2013Q1

REPORT INFORMATION
  Report Type: Spontaneous
  Country: US (occurrence: None)
  Receive Date: 20130213
  Receipt Date: 20130213
  Transmission Date: 20140127
  Serious: Yes (Other)
  Sender: FDA-Public Use
  Company Number: None

PATIENT
  Age: 59 Year
  Sex: Male

DRUGS (1)
  1. ZYTIGA [Suspect]
     Route: 048
     Dates: start: 20120813

REACTIONS (3)
  - Confusional state [None]
  - Tremor [None]
  - Dizziness postural [None]
